FAERS Safety Report 15548834 (Version 4)
Quarter: 2019Q1

REPORT INFORMATION
  Report Type: Report from Study
  Country: US (occurrence: US)
  Receive Date: 20181025
  Receipt Date: 20190201
  Transmission Date: 20190417
  Serious: No
  Sender: FDA-Public Use
  Company Number: PHEH2018US044053

PATIENT
  Age: 28 Year
  Sex: Female

DRUGS (1)
  1. GILENYA [Suspect]
     Active Substance: FINGOLIMOD HYDROCHLORIDE
     Indication: MULTIPLE SCLEROSIS
     Dosage: 0.5 MG, QD
     Route: 048
     Dates: start: 20180918

REACTIONS (12)
  - Headache [Unknown]
  - Migraine [Recovered/Resolved]
  - Abdominal pain upper [Unknown]
  - Sedation [Unknown]
  - Abdominal pain [Unknown]
  - Fatigue [Recovering/Resolving]
  - Alopecia [Unknown]
  - Nausea [Unknown]
  - Dizziness [Unknown]
  - Heart rate decreased [Unknown]
  - Eye pain [Unknown]
  - Pain in extremity [Unknown]

NARRATIVE: CASE EVENT DATE: 20180918
